FAERS Safety Report 7912961-4 (Version None)
Quarter: 2011Q4

REPORT INFORMATION
  Report Type: 
  Country: None (occurrence: None)
  Receive Date: 20111114
  Receipt Date: 20111107
  Transmission Date: 20120403
  Serious: Yes (Hospitalization)
  Sender: FDA-Public Use
  Company Number: US-SANOFI-AVENTIS-2011SA073793

PATIENT
  Sex: Male

DRUGS (2)
  1. SOLOSTAR [Suspect]
  2. LANTUS [Suspect]
     Route: 058
     Dates: start: 20010101

REACTIONS (3)
  - HOSPITALISATION [None]
  - VISUAL ACUITY REDUCED [None]
  - HYPERGLYCAEMIA [None]
